FAERS Safety Report 15512798 (Version 1)
Quarter: 2018Q4

REPORT INFORMATION
  Report Type: Spontaneous
  Country: US (occurrence: US)
  Receive Date: 20181016
  Receipt Date: 20181016
  Transmission Date: 20190205
  Serious: No
  Sender: FDA-Public Use
  Company Number: US-AMGEN-USASP2018054247

PATIENT
  Age: 74 Year
  Sex: Female

DRUGS (1)
  1. NEULASTA [Suspect]
     Active Substance: PEGFILGRASTIM
     Indication: PRODUCT USED FOR UNKNOWN INDICATION
     Dosage: UNK
     Route: 065

REACTIONS (9)
  - Nerve injury [Not Recovered/Not Resolved]
  - Hypoacusis [Not Recovered/Not Resolved]
  - Constipation [Unknown]
  - Application site mass [Not Recovered/Not Resolved]
  - Application site haemorrhage [Unknown]
  - Pain [Recovered/Resolved]
  - Wrong technique in product usage process [Unknown]
  - Gait disturbance [Unknown]
  - Tremor [Unknown]

NARRATIVE: CASE EVENT DATE: 201804
